FAERS Safety Report 25423357 (Version 2)
Quarter: 2025Q3

REPORT INFORMATION
  Report Type: Report from Study
  Country: US (occurrence: US)
  Receive Date: 20250611
  Receipt Date: 20250827
  Transmission Date: 20251020
  Serious: Yes (Hospitalization, Other)
  Sender: EISAI
  Company Number: US-Eisai-EC-2025-190655

PATIENT
  Age: 72 Year
  Sex: Female
  Weight: 78.5 kg

DRUGS (10)
  1. LECANEMAB [Suspect]
     Active Substance: LECANEMAB
     Indication: Dementia Alzheimer^s type
     Route: 042
     Dates: start: 20241031, end: 20241114
  2. LECANEMAB [Suspect]
     Active Substance: LECANEMAB
     Route: 042
     Dates: start: 20241226, end: 20241226
  3. LOSARTAN [Concomitant]
     Active Substance: LOSARTAN
     Dates: start: 201304
  4. CITALOPRAM [Concomitant]
     Active Substance: CITALOPRAM
     Dates: start: 201603
  5. ATORVASTATIN [Concomitant]
     Active Substance: ATORVASTATIN
     Dates: start: 202302
  6. BUPROPION [Concomitant]
     Active Substance: BUPROPION
  7. BUPROPION [Concomitant]
     Active Substance: BUPROPION
  8. MIRABEGRON [Concomitant]
     Active Substance: MIRABEGRON
     Dates: start: 202309
  9. GALANTAMINE [Concomitant]
     Active Substance: GALANTAMINE
     Dates: start: 202405
  10. TRAZODONE [Concomitant]
     Active Substance: TRAZODONE HYDROCHLORIDE

REACTIONS (1)
  - Asthenia [Recovered/Resolved]

NARRATIVE: CASE EVENT DATE: 20241031
